FAERS Safety Report 4509751-1 (Version None)
Quarter: 2004Q4

REPORT INFORMATION
  Report Type: 
  Country: None (occurrence: None)
  Receive Date: 20041124
  Receipt Date: 20031017
  Transmission Date: 20050328
  Serious: No
  Sender: FDA-Public Use
  Company Number: US-BRISTOL-MYERS SQUIBB COMPANY-12414199

PATIENT
  Age: 69 Year
  Sex: Female

DRUGS (2)
  1. AVALIDE [Suspect]
     Indication: HYPERTENSION
     Dates: start: 20030801
  2. AGGRENOX [Suspect]
     Indication: PROPHYLAXIS
     Dosage: DOSE VALUE:  25 MG/200 MG
     Dates: start: 20030701

REACTIONS (1)
  - DIZZINESS [None]
